FAERS Safety Report 8232374-8 (Version None)
Quarter: 2012Q1

REPORT INFORMATION
  Report Type: 
  Country: None (occurrence: None)
  Receive Date: 20120323
  Receipt Date: 20120321
  Transmission Date: 20120608
  Serious: Yes (Death)
  Sender: FDA-Public Use
  Company Number: ES-GLAXOSMITHKLINE-B0744310B

PATIENT
  Sex: Female
  Weight: 81 kg

DRUGS (4)
  1. VOTRIENT [Suspect]
     Indication: OVARIAN NEOPLASM
     Dosage: 800MG PER DAY
     Route: 048
     Dates: start: 20110413, end: 20120301
  2. PRIMPERAN TAB [Concomitant]
     Indication: NAUSEA
     Dosage: 5ML AS REQUIRED
     Route: 048
     Dates: start: 20120311
  3. OMEPRAZOLE [Concomitant]
     Indication: PROPHYLAXIS
     Dosage: 20MG PER DAY
     Route: 048
     Dates: start: 20100501
  4. ACETAMINOPHEN [Concomitant]
     Indication: ABDOMINAL PAIN UPPER
     Dosage: 1G PER DAY
     Route: 048
     Dates: start: 20120311

REACTIONS (1)
  - SEPTIC SHOCK [None]
